FAERS Safety Report 4312277-1 (Version None)
Quarter: 2004Q1

REPORT INFORMATION
  Report Type: 
  Country: None (occurrence: None)
  Receive Date: 20040305
  Receipt Date: 20020130
  Transmission Date: 20041129
  Serious: Yes (Life-Threatening, Hospitalization, Other)
  Sender: FDA-Public Use
  Company Number: US-GLAXOSMITHKLINE-A0357840A

PATIENT
  Age: 37 Year
  Sex: Female
  Weight: 61.8 kg

DRUGS (7)
  1. PAXIL [Suspect]
     Indication: PANIC ATTACK
     Dates: start: 20010223, end: 20010601
  2. WELLBUTRIN SR [Suspect]
     Indication: DEPRESSION
     Dosage: 150MG TWICE PER DAY
     Route: 048
  3. EFFEXOR [Concomitant]
  4. ATIVAN [Concomitant]
     Dosage: .5MG AS REQUIRED
  5. ATENOLOL [Concomitant]
     Indication: ARRHYTHMIA
     Dosage: 25MG PER DAY
     Dates: start: 20010405
  6. ALCOHOL [Concomitant]
  7. VALIUM [Concomitant]
     Route: 048

REACTIONS (28)
  - ABDOMINAL DISCOMFORT [None]
  - ABORTION SPONTANEOUS [None]
  - AGGRESSION [None]
  - AGITATION [None]
  - ANGER [None]
  - ANXIETY [None]
  - COMPLICATIONS OF MATERNAL EXPOSURE TO THERAPEUTIC DRUGS [None]
  - CONFUSIONAL STATE [None]
  - CONVULSION [None]
  - DEPENDENCE [None]
  - DIZZINESS [None]
  - DRUG DEPENDENCE [None]
  - DRUG INEFFECTIVE [None]
  - DRUG WITHDRAWAL SYNDROME [None]
  - INFLUENZA [None]
  - INSOMNIA [None]
  - MATERNAL DRUGS AFFECTING FOETUS [None]
  - MOTOR DYSFUNCTION [None]
  - NAUSEA [None]
  - NIGHTMARE [None]
  - PREGNANCY [None]
  - PSYCHOTIC DISORDER [None]
  - PYREXIA [None]
  - SENSORY DISTURBANCE [None]
  - SUICIDAL IDEATION [None]
  - SUICIDE ATTEMPT [None]
  - TREMOR [None]
  - VOMITING [None]
